FAERS Safety Report 15612199 (Version 2)
Quarter: 2018Q4

REPORT INFORMATION
  Report Type: Report from Study
  Country: US (occurrence: US)
  Receive Date: 20181113
  Receipt Date: 20181127
  Transmission Date: 20190205
  Serious: Yes (Other)
  Sender: FDA-Public Use
  Company Number: US-TESARO-2018-TSO1174-US

PATIENT
  Age: 61 Year
  Sex: Female
  Weight: 125.62 kg

DRUGS (1)
  1. ZEJULA [Suspect]
     Active Substance: NIRAPARIB
     Indication: OVARIAN CANCER
     Dosage: 200 MG (2 CAPSULES OF 100 MG), QPM
     Route: 048
     Dates: start: 20180914

REACTIONS (4)
  - Bone pain [Unknown]
  - Urinary tract infection [Unknown]
  - Myalgia [Recovering/Resolving]
  - Neuropathy peripheral [Not Recovered/Not Resolved]

NARRATIVE: CASE EVENT DATE: 201809
